FAERS Safety Report 8220706-6 (Version None)
Quarter: 2012Q1

REPORT INFORMATION
  Report Type: 
  Country: None (occurrence: None)
  Receive Date: 20120320
  Receipt Date: 20120312
  Transmission Date: 20120608
  Serious: Yes (Hospitalization)
  Sender: FDA-Public Use
  Company Number: CA-UCBSA-053291

PATIENT
  Age: 75 Year
  Sex: Female
  Weight: 96.8 kg

DRUGS (20)
  1. ACTONEL [Concomitant]
     Route: 048
  2. MULTI-VITAMIN [Concomitant]
     Dosage: 1 TABLET OD
     Route: 048
  3. SERC [Concomitant]
     Dosage: UNKNOWN DOSE
     Route: 048
  4. CALCIUM CARBONATE [Concomitant]
     Route: 048
  5. CIMZIA [Suspect]
     Indication: RHEUMATOID ARTHRITIS
     Route: 058
     Dates: start: 20110128
  6. CIMZIA [Suspect]
     Dosage: WEEK 0-2-4
     Route: 058
     Dates: start: 20101217, end: 20110114
  7. METHOTREXATE [Concomitant]
     Indication: RHEUMATOID ARTHRITIS
     Route: 048
     Dates: start: 20021101
  8. PERCOCET [Concomitant]
     Dosage: 1-2 TABS TID
     Route: 048
  9. VITAMIN D [Concomitant]
     Route: 048
  10. CRESTOR [Concomitant]
     Route: 048
  11. DILAUDID [Concomitant]
     Indication: PAIN
  12. FOLIC ACID [Concomitant]
     Dosage: NUMBER OF INTAKES : 6/7
     Route: 048
  13. ASPIRIN [Concomitant]
     Dosage: UNKNOWN DOSE
     Route: 048
  14. ALTACE [Concomitant]
     Route: 048
  15. BISOPROLOL FUMERATE [Concomitant]
     Route: 048
  16. PREDNISONE [Concomitant]
     Indication: RHEUMATOID ARTHRITIS
     Route: 048
     Dates: start: 20000101
  17. SPIRONOLACTONE [Concomitant]
     Route: 048
  18. LASIX [Concomitant]
     Route: 048
  19. LEVOTHYROXINE SODIUM [Concomitant]
     Route: 048
  20. PREVACID [Concomitant]
     Route: 048

REACTIONS (2)
  - STRESS FRACTURE [None]
  - INFECTION [None]
